FAERS Safety Report 16950933 (Version 1)
Quarter: 2019Q4

REPORT INFORMATION
  Report Type: Spontaneous
  Country: IN (occurrence: IN)
  Receive Date: 20191023
  Receipt Date: 20191023
  Transmission Date: 20200122
  Serious: Yes (Other)
  Sender: FDA-Public Use
  Company Number: IN-CHEPLA-C20192644

PATIENT
  Age: 6 Year
  Sex: Female

DRUGS (1)
  1. GANCICLOVIR. [Suspect]
     Active Substance: GANCICLOVIR
     Indication: CYTOMEGALOVIRUS INFECTION
     Dosage: 5 MG/KG/DAY
     Route: 051

REACTIONS (4)
  - Product use issue [Recovered/Resolved]
  - Cytomegalovirus colitis [Unknown]
  - Drug ineffective [Unknown]
  - Cytomegalovirus infection [Recovered/Resolved]
